FAERS Safety Report 4978518-2 (Version None)
Quarter: 2006Q2

REPORT INFORMATION
  Report Type: 
  Country: None (occurrence: None)
  Receive Date: 20060414
  Receipt Date: 20060406
  Transmission Date: 20061013
  Serious: Yes (Other)
  Sender: FDA-Public Use
  Company Number: 163-21880-06040344

PATIENT
  Age: 63 Year
  Sex: Male

DRUGS (1)
  1. REVLIMID [Suspect]
     Indication: MYELODYSPLASTIC SYNDROME
     Dosage: 10 MG, QD, ORAL
     Route: 048
     Dates: start: 20060302, end: 20060323

REACTIONS (3)
  - BLOOD CALCIUM INCREASED [None]
  - CHRONIC LYMPHOCYTIC LEUKAEMIA [None]
  - UNEVALUABLE EVENT [None]
